FAERS Safety Report 23489512 (Version 1)
Quarter: 2024Q1

REPORT INFORMATION
  Report Type: Spontaneous
  Country: US (occurrence: None)
  Receive Date: 20240206
  Receipt Date: 20240206
  Transmission Date: 20240410
  Serious: No
  Sender: FDA-Public Use
  Company Number: US-ROCHE-3328868

PATIENT
  Sex: Female
  Weight: 84.535 kg

DRUGS (1)
  1. XOLAIR [Suspect]
     Active Substance: OMALIZUMAB
     Indication: Asthma
     Dosage: FORMULATION: VIAL?THE MOST RECENT START DATE WAS IN /FEB/2023
     Route: 058
     Dates: start: 202302

REACTIONS (1)
  - Alopecia [Not Recovered/Not Resolved]
